FAERS Safety Report 13739220 (Version 5)
Quarter: 2018Q2

REPORT INFORMATION
  Report Type: Report from Study
  Country: US (occurrence: US)
  Receive Date: 20170710
  Receipt Date: 20180611
  Transmission Date: 20180711
  Serious: Yes (Other)
  Sender: FDA-Public Use
  Company Number: US-ACTELION-A-US2016-147671

PATIENT
  Age: 81 Year
  Sex: Female
  Weight: 87.75 kg

DRUGS (14)
  1. KETOCONAZOLE. [Concomitant]
     Active Substance: KETOCONAZOLE
  2. TRACLEER [Suspect]
     Active Substance: BOSENTAN
     Indication: PULMONARY HYPERTENSION
     Dosage: 125 MG, BID;  62.5 MG BID, HAS BEEN CUTTING 125 MG TABS IN HALF
     Route: 048
     Dates: start: 20120623
  3. PRADAXA [Concomitant]
     Active Substance: DABIGATRAN ETEXILATE MESYLATE
  4. POTASSIUM [Concomitant]
     Active Substance: POTASSIUM
  5. TRACLEER [Suspect]
     Active Substance: BOSENTAN
     Dosage: 125 MG, QD
     Route: 048
  6. VITAMIN D [Concomitant]
     Active Substance: CHOLECALCIFEROL
  7. LEVOTHYROXINE. [Concomitant]
     Active Substance: LEVOTHYROXINE
  8. LOSARTAN. [Concomitant]
     Active Substance: LOSARTAN
  9. CLINDAMYCIN. [Concomitant]
     Active Substance: CLINDAMYCIN
  10. XARELTO [Concomitant]
     Active Substance: RIVAROXABAN
  11. FUROSEMIDE. [Concomitant]
     Active Substance: FUROSEMIDE
  12. WARFARIN [Concomitant]
     Active Substance: WARFARIN
  13. BETAMETHASONE. [Concomitant]
     Active Substance: BETAMETHASONE
  14. FLECAINIDE [Concomitant]
     Active Substance: FLECAINIDE

REACTIONS (4)
  - Nasal congestion [Unknown]
  - Anaemia [Unknown]
  - Meningitis [Unknown]
  - Fluid retention [Unknown]
